FAERS Safety Report 17576891 (Version 2)
Quarter: 2020Q2

REPORT INFORMATION
  Report Type: Spontaneous
  Country: DE (occurrence: DE)
  Receive Date: 20200324
  Receipt Date: 20200428
  Transmission Date: 20200713
  Serious: Yes (Hospitalization, Other)
  Sender: FDA-Public Use
  Company Number: DE-MYLANLABS-2020M1029524

PATIENT
  Age: 30 Year
  Sex: Female

DRUGS (7)
  1. LAMOTRIGINE. [Suspect]
     Active Substance: LAMOTRIGINE
     Indication: PRODUCT USED FOR UNKNOWN INDICATION
     Dosage: UNK
     Route: 065
  2. ORFIRIL [Suspect]
     Active Substance: VALPROATE SODIUM
     Dosage: 1800 MILLIGRAM, QD (600-0-1200; BATCH WAS SWITCHED)
  3. FYCOMPA [Concomitant]
     Active Substance: PERAMPANEL
     Dosage: UNK
  4. KEPPRA [Concomitant]
     Active Substance: LEVETIRACETAM
     Dosage: UNK
  5. ORFIRIL [Suspect]
     Active Substance: VALPROATE SODIUM
     Indication: SEIZURE
     Dosage: ALREADY TAKEN FOR MANY YEARS
     Route: 065
  6. L-THYROX [Concomitant]
     Active Substance: LEVOTHYROXINE SODIUM
     Dosage: UNK
  7. ORFIRIL [Suspect]
     Active Substance: VALPROATE SODIUM
     Indication: EPILEPSY
     Dosage: 600 MG IN THE MORNING, 900 MG IN THE EVENING

REACTIONS (5)
  - Seizure [Recovering/Resolving]
  - Drug hypersensitivity [Unknown]
  - Product physical issue [Unknown]
  - Therapeutic product effect decreased [Unknown]
  - Anticonvulsant drug level decreased [Unknown]

NARRATIVE: CASE EVENT DATE: 202001
